FAERS Safety Report 21210053 (Version 1)
Quarter: 2022Q3

REPORT INFORMATION
  Report Type: Spontaneous
  Country: GB (occurrence: GB)
  Receive Date: 20220814
  Receipt Date: 20220814
  Transmission Date: 20221027
  Serious: Yes (Hospitalization)
  Sender: FDA-Public Use
  Company Number: None

PATIENT
  Age: 61 Year
  Sex: Male

DRUGS (10)
  1. METFORMIN [Suspect]
     Active Substance: METFORMIN HYDROCHLORIDE
     Dosage: 1G MODIFIED-RELEASE TABLETS ONE TO BE TAKEN EACH MORNING
  2. OMEPRAZOLE [Suspect]
     Active Substance: OMEPRAZOLE
  3. DOMPERIDONE [Concomitant]
     Active Substance: DOMPERIDONE
     Dosage: 1MG/ML ORAL SUSPENSION SUGAR FREE TWO 5ML SPOONFULS TO BE TAKEN UP TO THREE TIMES A DAY. MAXIMUM ...
     Dates: start: 20211229
  4. MORPHINE [Concomitant]
     Active Substance: MORPHINE
     Dosage: 10MG MODIFIED-RELEASE TABLETS TWO TO BE TAKEN EVERY 12 HOURS
  5. MORPHINE [Concomitant]
     Active Substance: MORPHINE
     Dosage: 10MG/5ML ORAL SOLUTION 2.5 - 5MLS TO BE TAKEN UP TO FOUR TIMES A DAY/PRN 300 ML
  6. ONDANSETRON [Concomitant]
     Active Substance: ONDANSETRON
     Dosage: 4MG TABLETS BD/PRN 30 TABLET PRN
     Dates: start: 20211231
  7. ZOPICLONE [Concomitant]
     Active Substance: ZOPICLONE
     Dosage: 3.75MG TABLETS ONE TO BE TAKEN AT NIGHT/PRN 14 TABLET 1ON REGULAR
  8. PEPPERMINT OIL [Concomitant]
     Active Substance: PEPPERMINT OIL
     Dosage: 0.2ML GASTRO-RESISTANT CAPSULES ONE TO BE TAKEN THREE TIMES A DAY PRN
     Dates: start: 20220221
  9. FERROUS FUMARATE [Concomitant]
     Active Substance: FERROUS FUMARATE
     Dosage: 210MG TABLETS ONE TO BE TAKEN THREE TIMES A DAY 168 TABLET WAS TAKING AT HOME
     Dates: start: 20220208
  10. COSMOCOL [Concomitant]
     Dosage: ORANGE FLAVOUR ORAL POWDER SACHETS 1-2 TWICE DAILY 30SACHET PRN
     Dates: start: 20211220

REACTIONS (2)
  - Blood lactic acid increased [Recovered/Resolved]
  - Hypomagnesaemia [Recovered/Resolved]
